FAERS Safety Report 10557901 (Version 1)
Quarter: 2014Q4

REPORT INFORMATION
  Report Type: Spontaneous
  Country: US (occurrence: US)
  Receive Date: 20141031
  Receipt Date: 20141031
  Transmission Date: 20150529
  Serious: Yes (Hospitalization, Other)
  Sender: FDA-Public Use
  Company Number: US-PFIZER INC-2014297101

PATIENT
  Age: 59 Year
  Sex: Male
  Weight: 93.42 kg

DRUGS (25)
  1. NEORAL [Concomitant]
     Active Substance: CYCLOSPORINE
     Indication: PROPHYLAXIS AGAINST TRANSPLANT REJECTION
     Dosage: 25 MG, 2X/DAY
     Route: 048
  2. ASPIRIN. [Concomitant]
     Active Substance: ASPIRIN
     Indication: ANTICOAGULANT THERAPY
     Dosage: 81 MG, 1X/DAY
     Route: 048
     Dates: start: 2007
  3. HYDROXYCHLOROQUINE SULFATE. [Concomitant]
     Active Substance: HYDROXYCHLOROQUINE SULFATE
     Indication: RHEUMATOID ARTHRITIS
     Dosage: 200 MG, UNK
     Route: 048
  4. NITROGLYCERIN. [Concomitant]
     Active Substance: NITROGLYCERIN
     Indication: CHEST PAIN
     Dosage: 0.3 MG, UNK
     Route: 060
  5. FUROSEMIDE. [Concomitant]
     Active Substance: FUROSEMIDE
     Indication: FLUID RETENTION
     Dosage: 40 MG, UNK
     Route: 048
  6. TRAMADOL HYDROCHLORIDE. [Concomitant]
     Active Substance: TRAMADOL HYDROCHLORIDE
     Indication: PAIN
     Dosage: (50MG ONE OR TWO TABLETS, EVERY 4-6 HOURS AND A TOTAL OF 8 TABS), DAILY (AS NEEDED)
     Route: 048
  7. CELLCEPT [Concomitant]
     Active Substance: MYCOPHENOLATE MOFETIL\MYCOPHENOLATE MOFETIL HYDROCHLORIDE
     Indication: PROPHYLAXIS AGAINST TRANSPLANT REJECTION
     Dosage: 250 MG, 2X/DAY
     Route: 048
  8. CALCIUM CARBONATE. [Concomitant]
     Active Substance: CALCIUM CARBONATE
     Indication: OSTEOPOROSIS
     Dosage: 500 MG, 2X/DAY
     Route: 048
  9. OMEPRAZOLE. [Concomitant]
     Active Substance: OMEPRAZOLE
     Indication: DYSPEPSIA
     Dosage: 20 MG, ALTERNATE DAY
     Route: 048
  10. LANTUS [Concomitant]
     Active Substance: INSULIN GLARGINE
     Indication: BLOOD GLUCOSE ABNORMAL
     Dosage: 100UNITS/ML INJECTION 52 UNITS
  11. HUMALOG PEN [Concomitant]
     Active Substance: INSULIN LISPRO
     Indication: BLOOD GLUCOSE ABNORMAL
     Dosage: 100U/ML BASE DOSE 7 UNITS
  12. METOPROLOL SUCCINATE. [Concomitant]
     Active Substance: METOPROLOL SUCCINATE
     Indication: CARDIAC DISORDER
  13. TYLENOL [Concomitant]
     Active Substance: ACETAMINOPHEN
     Dosage: 1000 MG, EVERY 4-6 HOURS
     Route: 048
  14. FLEX-A-MIN [Concomitant]
     Indication: ARTHROPATHY
     Dosage: 2 DF (1500MG OF GLUCOSOMINE AND 1200MG OF CHONDROITIN), UNK
     Route: 048
  15. VFEND [Suspect]
     Active Substance: VORICONAZOLE
     Indication: PNEUMONIA CRYPTOCOCCAL
     Dosage: (200MG ONE TABLET IN MORNING AND A HALF A TABLET IN 12 HOURS OF FIRST DOSE FOR A TOTAL 300MG)
     Route: 048
     Dates: start: 2012
  16. METOPROLOL SUCCINATE. [Concomitant]
     Active Substance: METOPROLOL SUCCINATE
     Indication: BLOOD PRESSURE ABNORMAL
     Dosage: 200 MG, DAILY
     Route: 048
  17. OMEPRAZOLE. [Concomitant]
     Active Substance: OMEPRAZOLE
     Indication: GASTRIC ULCER
  18. FOLIC ACID. [Concomitant]
     Active Substance: FOLIC ACID
     Indication: NUTRITIONAL SUPPLEMENTATION
     Dosage: 1 MG, DAILY
     Route: 048
  19. FISH OIL OMEGA 3 [Concomitant]
     Dosage: 1200 MG, DAILY
     Route: 048
  20. VITAMIN D-3 [Concomitant]
     Indication: BONE DISORDER
     Dosage: 2000 IU, UNK
     Route: 048
  21. PRAVASTATIN [Concomitant]
     Active Substance: PRAVASTATIN\PRAVASTATIN SODIUM
     Indication: BLOOD CHOLESTEROL INCREASED
     Dosage: 40 MG (1 TABLET), UNK
     Route: 048
  22. ALENDRONATE [Concomitant]
     Active Substance: ALENDRONATE SODIUM
     Indication: OSTEOPOROSIS
     Dosage: 70 MG, ONCE WEEKLY
     Route: 048
  23. METHOTREXATE SODIUM. [Concomitant]
     Active Substance: METHOTREXATE SODIUM
     Indication: RHEUMATOID ARTHRITIS
     Dosage: 2.5 MG, WEEKLY
     Route: 048
  24. IRON [Concomitant]
     Active Substance: IRON
     Indication: SUPPLEMENTATION THERAPY
     Dosage: 65 MG, UNK
     Route: 048
  25. SULFAMETHOXAZOLE AND TRIMETHOPRIM [Concomitant]
     Active Substance: SULFAMETHOXAZOLE\TRIMETHOPRIM
     Indication: ANTIBIOTIC PROPHYLAXIS
     Dosage: SULFAMETHOXAZOLE  400MGTTRIMETHOPRIM 80MG, THREE TIMES A WEEK
     Route: 048
     Dates: start: 200805

REACTIONS (8)
  - Urinary tract infection [Unknown]
  - Deep vein thrombosis [Unknown]
  - Condition aggravated [Unknown]
  - Pyrexia [Unknown]
  - Drug ineffective for unapproved indication [Unknown]
  - Kidney infection [Unknown]
  - Fall [Unknown]
  - Muscular weakness [Unknown]

NARRATIVE: CASE EVENT DATE: 20140727
